FAERS Safety Report 6195371-2 (Version None)
Quarter: 2009Q2

REPORT INFORMATION
  Report Type: 
  Country: None (occurrence: None)
  Receive Date: 20090515
  Receipt Date: 20090508
  Transmission Date: 20091009
  Serious: Yes (Other)
  Sender: FDA-Public Use
  Company Number: TPA2009A00978

PATIENT
  Sex: Female

DRUGS (2)
  1. ACTOS [Suspect]
     Indication: DRUG USE FOR UNKNOWN INDICATION
     Dates: start: 20070508, end: 20090101
  2. AMIODARONE HCL [Suspect]
     Indication: ARRHYTHMIA
     Dates: end: 20090101

REACTIONS (1)
  - HEPATIC CIRRHOSIS [None]
